FAERS Safety Report 24186270 (Version 1)
Quarter: 2024Q3

REPORT INFORMATION
  Report Type: Report from Study
  Country: US (occurrence: None)
  Receive Date: 20240808
  Receipt Date: 20240808
  Transmission Date: 20241017
  Serious: Yes (Other)
  Sender: ASTRAZENECA
  Company Number: 2022A223469

PATIENT
  Sex: Male
  Weight: 93.9 kg

DRUGS (1)
  1. SYMBICORT [Suspect]
     Active Substance: BUDESONIDE\FORMOTEROL FUMARATE DIHYDRATE
     Indication: Chronic obstructive pulmonary disease
     Dosage: 160/ 4.5 MCG 2 PUFFS, TWO TIMES A DAY
     Route: 055

REACTIONS (8)
  - Cerebral haemorrhage [Unknown]
  - Memory impairment [Not Recovered/Not Resolved]
  - Dyspnoea [Not Recovered/Not Resolved]
  - Fall [Unknown]
  - Gait disturbance [Unknown]
  - Haematoma [Unknown]
  - Dizziness [Unknown]
  - Product dose omission issue [Unknown]
